FAERS Safety Report 24563054 (Version 4)
Quarter: 2025Q4

REPORT INFORMATION
  Report Type: Report from Study
  Country: US (occurrence: US)
  Receive Date: 20241030
  Receipt Date: 20251009
  Transmission Date: 20260117
  Serious: Yes (Hospitalization, Other)
  Sender: UCB
  Company Number: US-UCBSA-2024049421

PATIENT
  Age: 14 Year
  Sex: Female
  Weight: 49.4 kg

DRUGS (4)
  1. FINTEPLA [Suspect]
     Active Substance: FENFLURAMINE
     Indication: Lennox-Gastaut syndrome
     Dosage: 3.4 MILLILITER, 2X/DAY (BID)
  2. FINTEPLA [Suspect]
     Active Substance: FENFLURAMINE
     Dosage: 0.30 MILLIGRAM/KILOGRAM, ONCE DAILY (QD) (15 MG PER DAY)
  3. FINTEPLA [Suspect]
     Active Substance: FENFLURAMINE
     Dosage: 3.4 MILLILITER, 2X/DAY (BID)
  4. FINTEPLA [Suspect]
     Active Substance: FENFLURAMINE
     Dosage: 15MG/DAY

REACTIONS (4)
  - Hospitalisation [Not Recovered/Not Resolved]
  - Mitral valve incompetence [Recovered/Resolved]
  - Tricuspid valve incompetence [Not Recovered/Not Resolved]
  - Dilatation ventricular [Unknown]

NARRATIVE: CASE EVENT DATE: 20240921
